FAERS Safety Report 16946550 (Version 1)
Quarter: 2019Q4

REPORT INFORMATION
  Report Type: Spontaneous
  Country: UM (occurrence: UM)
  Receive Date: 20190830
  Receipt Date: 20190830
  Transmission Date: 20200122
  Serious: Yes (Hospitalization)
  Sender: FDA-Public Use
  Company Number: None

PATIENT
  Age: 71 Year
  Sex: Male
  Weight: 97.07 kg

DRUGS (2)
  1. NO DRUG NAME [Concomitant]
  2. APIXABAN [Suspect]
     Active Substance: APIXABAN
     Dosage: ?          OTHER DOSE:2.5MG OR 5MG;?
     Route: 048
     Dates: start: 20190423

REACTIONS (4)
  - Sepsis [None]
  - Pneumonia [None]
  - Cardiac failure [None]
  - Ejection fraction decreased [None]

NARRATIVE: CASE EVENT DATE: 20190823
